FAERS Safety Report 22045497 (Version 1)
Quarter: 2023Q1

REPORT INFORMATION
  Report Type: Spontaneous
  Country: IL (occurrence: IL)
  Receive Date: 20230228
  Receipt Date: 20230228
  Transmission Date: 20230418
  Serious: Yes (Other)
  Sender: FDA-Public Use
  Company Number: IL-AMGEN-ISRSP2023032399

PATIENT
  Age: 38 Year
  Sex: Female

DRUGS (1)
  1. ADALIMUMAB [Suspect]
     Active Substance: ADALIMUMAB
     Indication: Product used for unknown indication
     Dosage: 40 UNK
     Route: 065
     Dates: start: 20220919

REACTIONS (7)
  - Panic attack [Unknown]
  - Dissociation [Unknown]
  - Anger [Unknown]
  - Confusional state [Unknown]
  - Headache [Unknown]
  - Hypoaesthesia [Unknown]
  - Insomnia [Unknown]
